FAERS Safety Report 4674332-6 (Version None)
Quarter: 2005Q2

REPORT INFORMATION
  Report Type: 
  Country: None (occurrence: None)
  Receive Date: 20050526
  Receipt Date: 20040707
  Transmission Date: 20051028
  Serious: No
  Sender: FDA-Public Use
  Company Number: US-BRISTOL-MYERS SQUIBB COMPANY-12633970

PATIENT
  Age: 58 Year
  Sex: Female
  Weight: 97 kg

DRUGS (6)
  1. KLOTRIX [Suspect]
     Indication: BLOOD POTASSIUM DECREASED
     Route: 048
  2. ASPIRIN [Concomitant]
  3. GLUCOPHAGE [Concomitant]
  4. PREDNISONE TAB [Concomitant]
  5. HYDROCHLOROTHIAZIDE [Concomitant]
  6. MULTI-VITAMIN [Concomitant]

REACTIONS (1)
  - STOOL ANALYSIS ABNORMAL [None]
